FAERS Safety Report 14506139 (Version 1)
Quarter: 2018Q1

REPORT INFORMATION
  Report Type: Spontaneous
  Country: NO (occurrence: NO)
  Receive Date: 20180208
  Receipt Date: 20180208
  Transmission Date: 20180509
  Serious: Yes (Death, Other)
  Sender: FDA-Public Use
  Company Number: NO-CELLTRION INC.-2017NO014795

PATIENT

DRUGS (5)
  1. INFLIXIMAB PFIZER (UNKNOWN) [Suspect]
     Active Substance: INFLIXIMAB
     Indication: PNEUMONITIS CHEMICAL
     Dosage: UNK
     Route: 040
     Dates: start: 20170914
  2. FLORINEF ACETATE [Concomitant]
     Active Substance: FLUDROCORTISONE ACETATE
     Dosage: 0.1 MG, 1X/DAY
     Route: 048
  3. LEVAXIN [Concomitant]
     Active Substance: LEVOTHYROXINE SODIUM
     Dosage: 75 UG, 1X/DAY
     Route: 048
  4. NIVOLUMAB [Concomitant]
     Active Substance: NIVOLUMAB
     Dosage: UNK
     Route: 040
     Dates: start: 2015
  5. PREDNISOLON                        /00016201/ [Concomitant]
     Active Substance: PREDNISOLONE
     Dosage: 30 MG, 2X/DAY
     Route: 048
     Dates: start: 201705

REACTIONS (5)
  - Pneumonia pneumococcal [Fatal]
  - Hypotension [Fatal]
  - Sepsis [Fatal]
  - Leukopenia [Fatal]
  - Product use in unapproved indication [None]

NARRATIVE: CASE EVENT DATE: 20170914
